FAERS Safety Report 26133322 (Version 1)
Quarter: 2025Q4

REPORT INFORMATION
  Report Type: Spontaneous
  Country: US (occurrence: US)
  Receive Date: 20251209
  Receipt Date: 20251209
  Transmission Date: 20260119
  Serious: No
  Sender: ASTELLAS
  Company Number: US-ASTELLAS-2025-AER-067763

PATIENT
  Sex: Male

DRUGS (1)
  1. PADCEV [Suspect]
     Active Substance: ENFORTUMAB VEDOTIN-EJFV
     Indication: Product used for unknown indication
     Dosage: 20MG OFF LABEL DOSE: 1ST DOSE 20-NOV (UNSPECIFIED YEAR) (DAY 1). 2ND DOSE 12/4 (UNSPECIFIED YEAR) (D
     Route: 042

REACTIONS (3)
  - Off label use [Unknown]
  - Off label use [Unknown]
  - Underdose [Unknown]
